FAERS Safety Report 6546503-5 (Version None)
Quarter: 2010Q1

REPORT INFORMATION
  Report Type: 
  Country: None (occurrence: None)
  Receive Date: 20100122
  Receipt Date: 20100115
  Transmission Date: 20100710
  Serious: Yes (Hospitalization, Other)
  Sender: FDA-Public Use
  Company Number: JP-B.I. PHARMACEUTICALS,INC./RIDGEFIELD-2010-BP-00558NB

PATIENT
  Age: 70 Year
  Sex: Male

DRUGS (2)
  1. MOBIC [Suspect]
     Indication: OSTEOARTHRITIS
     Dosage: 10 MG
     Route: 048
     Dates: start: 20071201, end: 20091201
  2. SELBEX [Concomitant]
     Route: 048

REACTIONS (3)
  - HAEMATEMESIS [None]
  - PEPTIC ULCER HAEMORRHAGE [None]
  - SHOCK [None]
